FAERS Safety Report 9139407 (Version 2)
Quarter: 2013Q2

REPORT INFORMATION
  Report Type: Spontaneous
  Country: US (occurrence: US)
  Receive Date: 20130305
  Receipt Date: 20130402
  Transmission Date: 20140414
  Serious: Yes (Other)
  Sender: FDA-Public Use
  Company Number: PHEH2013US005013

PATIENT
  Sex: Female

DRUGS (3)
  1. GLEEVEC [Suspect]
  2. TASIGNA [Concomitant]
  3. COLACE [Concomitant]

REACTIONS (2)
  - Recurrent cancer [Unknown]
  - Drug ineffective [Unknown]
